FAERS Safety Report 9087427 (Version 1)
Quarter: 2013Q1

REPORT INFORMATION
  Report Type: Report from Study
  Country: US (occurrence: US)
  Receive Date: 20130201
  Receipt Date: 20130201
  Transmission Date: 20140127
  Serious: No
  Sender: FDA-Public Use
  Company Number: US-ABBOTT-12P-163-1023846-00

PATIENT
  Sex: Male

DRUGS (4)
  1. HUMIRA [Suspect]
     Indication: CROHN^S DISEASE
     Dosage: WEEK 1
     Route: 058
     Dates: start: 201211, end: 201211
  2. HUMIRA [Suspect]
     Dosage: WEEK 2
     Route: 058
  3. HUMIRA [Suspect]
     Dosage: WEEK 4
     Route: 058
  4. HUMIRA [Suspect]
     Route: 058

REACTIONS (2)
  - Injection site erythema [Unknown]
  - Injection site swelling [Unknown]
